FAERS Safety Report 8702646 (Version 2)
Quarter: 2019Q3

REPORT INFORMATION
  Report Type: Spontaneous
  Country: FR (occurrence: FR)
  Receive Date: 20120803
  Receipt Date: 20190821
  Transmission Date: 20191005
  Serious: Yes (Hospitalization, Other)
  Sender: FDA-Public Use
  Company Number: FR-VIIV HEALTHCARE LIMITED-B0816389A

PATIENT
  Age: 5 Year
  Sex: Female

DRUGS (6)
  1. VIRAMUNE [Concomitant]
     Active Substance: NEVIRAPINE
     Indication: HIV INFECTION
     Dosage: UNK UNK, U
  2. EPIVIR [Concomitant]
     Active Substance: LAMIVUDINE
     Indication: HIV INFECTION
     Dosage: UNK UNK, U
  3. URSOLVAN [Concomitant]
     Active Substance: URSODIOL
     Indication: CHOLELITHIASIS MIGRATION
     Dosage: UNK UNK, U
     Route: 048
     Dates: start: 201203
  4. RETROVIR [Suspect]
     Active Substance: ZIDOVUDINE
     Indication: HIV INFECTION
     Route: 048
     Dates: end: 20120524
  5. BACTRIM [Suspect]
     Active Substance: SULFAMETHOXAZOLE\TRIMETHOPRIM
     Indication: PROPHYLAXIS
     Dosage: 5 ML, 1D
     Route: 048
     Dates: end: 20120524
  6. DEPAKINE [Suspect]
     Active Substance: VALPROATE SODIUM
     Indication: ENCEPHALOPATHY
     Route: 048
     Dates: end: 20120527

REACTIONS (4)
  - Aplasia pure red cell [Unknown]
  - Pyrexia [Unknown]
  - Conjunctival pallor [Unknown]
  - Anaemia [Recovered/Resolved]

NARRATIVE: CASE EVENT DATE: 20120211
